FAERS Safety Report 9492942 (Version 4)
Quarter: 2014Q2

REPORT INFORMATION
  Report Type: Spontaneous
  Country: AU (occurrence: AU)
  Receive Date: 20130902
  Receipt Date: 20140430
  Transmission Date: 20141212
  Serious: Yes (Disabling)
  Sender: FDA-Public Use
  Company Number: AU-009507513-1308AUS014063

PATIENT
  Age: 48 Year
  Sex: 0

DRUGS (3)
  1. CARBIDOPA (+) LEVODOPA [Suspect]
     Indication: PARKINSON^S DISEASE
     Dosage: LEVODOPA: 1500 MG DAILY
     Route: 048
  2. CARBIDOPA (+) LEVODOPA [Suspect]
     Indication: PARKINSON^S DISEASE
     Dosage: LEVODOPA: 1500 MG DAILY
     Route: 048
  3. CYANOCOBALAMIN [Concomitant]

REACTIONS (3)
  - Polyneuropathy [Not Recovered/Not Resolved]
  - Ataxia [Not Recovered/Not Resolved]
  - Peripheral sensory neuropathy [Not Recovered/Not Resolved]
